FAERS Safety Report 5210519-1 (Version None)
Quarter: 2007Q1

REPORT INFORMATION
  Report Type: 
  Country: None (occurrence: None)
  Receive Date: 20070116
  Receipt Date: 20070116
  Transmission Date: 20070707
  Serious: No
  Sender: FDA-Public Use
  Company Number: None

PATIENT
  Sex: Male
  Weight: 24.4942 kg

DRUGS (2)
  1. ROBITUSSIN DM 10 MG DEXTROMETHORPHAN WYETH [Suspect]
     Indication: COUGH
     Dosage: ON AND OFF
  2. ROBITUSSIN DM 10 MG DEXTROMETHORPHAN WYETH [Suspect]
     Indication: NASOPHARYNGITIS
     Dosage: ON AND OFF

REACTIONS (1)
  - CIRCUMSTANCE OR INFORMATION CAPABLE OF LEADING TO MEDICATION ERROR [None]
